FAERS Safety Report 15815464 (Version 2)
Quarter: 2019Q1

REPORT INFORMATION
  Report Type: Report from Study
  Country: KR (occurrence: KR)
  Receive Date: 20190112
  Receipt Date: 20190211
  Transmission Date: 20190417
  Serious: Yes (Hospitalization)
  Sender: FDA-Public Use
  Company Number: PHHY2019KR003125

PATIENT
  Age: 65 Year
  Sex: Male
  Weight: 58 kg

DRUGS (9)
  1. DIAMICRON MR [Concomitant]
     Active Substance: GLICLAZIDE
     Indication: DIABETES MELLITUS
     Dosage: 60 MG, UNK
     Route: 065
     Dates: start: 20180327
  2. TRAJENTA DUO [Concomitant]
     Active Substance: LINAGLIPTIN\METFORMIN HYDROCHLORIDE
     Indication: DIABETES MELLITUS
     Dosage: 1 DF (2.5/850 MG AND 1 T 2.5/500 MG), UNK
     Route: 065
     Dates: start: 20181031
  3. KREMEZIN [Concomitant]
     Active Substance: ACTIVATED CHARCOAL
     Indication: CHRONIC KIDNEY DISEASE
     Dosage: 6 G, UNK
     Route: 065
     Dates: start: 20181017, end: 20190104
  4. ATOZET [Concomitant]
     Active Substance: ATORVASTATIN CALCIUM\EZETIMIBE
     Indication: HYPERLIPIDAEMIA
     Dosage: 1 DF (10/20 MG), UNK
     Route: 065
     Dates: start: 20180427
  5. ENTRESTO [Suspect]
     Active Substance: SACUBITRIL\VALSARTAN
     Indication: CARDIAC FAILURE CHRONIC
     Dosage: 100 MG, BID (49 MG OF SACUBITRIL, 51 MG OF VALSARTAN)
     Route: 048
     Dates: start: 20181031, end: 20190102
  6. LASIX [Concomitant]
     Active Substance: FUROSEMIDE
     Indication: ISCHAEMIC CARDIOMYOPATHY
     Dosage: 40 MG, UNK
     Route: 065
     Dates: start: 20180427
  7. DILATREND [Concomitant]
     Active Substance: CARVEDILOL
     Indication: ISCHAEMIC CARDIOMYOPATHY
     Dosage: 6.25 MG, UNK
     Route: 065
     Dates: start: 20180427, end: 20190103
  8. ASPIRIN. [Concomitant]
     Active Substance: ASPIRIN
     Indication: PLATELET DISORDER
     Dosage: 100 MG, UNK
     Route: 065
     Dates: start: 20180408
  9. KASHUT [Concomitant]
     Indication: CHRONIC KIDNEY DISEASE
     Dosage: 3 OT (P), UNK
     Route: 065
     Dates: start: 20181017

REACTIONS (2)
  - Pleural effusion [Recovered/Resolved]
  - Blood creatinine increased [Unknown]

NARRATIVE: CASE EVENT DATE: 20181219
